FAERS Safety Report 6331952-0 (Version None)
Quarter: 2009Q3

REPORT INFORMATION
  Report Type: 
  Country: None (occurrence: None)
  Receive Date: 20090828
  Receipt Date: 20090821
  Transmission Date: 20100115
  Serious: Yes (Hospitalization)
  Sender: FDA-Public Use
  Company Number: US-BIOGENIDEC-2009BI023958

PATIENT
  Age: 64 Year
  Sex: Male

DRUGS (19)
  1. TYSABRI [Suspect]
     Indication: MULTIPLE SCLEROSIS
     Route: 042
     Dates: start: 20070301
  2. ACIPHEX [Concomitant]
  3. BACLOFEN [Concomitant]
  4. BACLOFEN [Concomitant]
  5. CARBAMAZEPINE [Concomitant]
  6. CRESTOR [Concomitant]
  7. CYMBALTA [Concomitant]
  8. FLOMAX [Concomitant]
  9. GABAPENTIN [Concomitant]
  10. HYOSCYAMINE [Concomitant]
  11. LASIX [Concomitant]
  12. LORTAB [Concomitant]
     Route: 048
  13. OXYCODONE [Concomitant]
  14. PROVIGIL [Concomitant]
  15. ROPINIROLE [Concomitant]
  16. SKELAXIN [Concomitant]
  17. TEMAZEPAM [Concomitant]
  18. TRAMADOL HCL [Concomitant]
  19. TRAZODONE HCL [Concomitant]

REACTIONS (10)
  - ALPHA HAEMOLYTIC STREPTOCOCCAL INFECTION [None]
  - ASPIRATION [None]
  - BACK PAIN [None]
  - EMBOLIC STROKE [None]
  - ENDOCARDITIS BACTERIAL [None]
  - FALL [None]
  - HEPATIC ENZYME INCREASED [None]
  - HYPERHIDROSIS [None]
  - MALAISE [None]
  - VERTIGO [None]
